FAERS Safety Report 10144587 (Version 1)
Quarter: 2014Q2

REPORT INFORMATION
  Report Type: Spontaneous
  Country: US (occurrence: US)
  Receive Date: 20140430
  Receipt Date: 20140430
  Transmission Date: 20141212
  Serious: Yes (Hospitalization)
  Sender: FDA-Public Use
  Company Number: US-SA-2014SA038432

PATIENT
  Age: 67 Year
  Sex: Female
  Weight: 110 kg

DRUGS (2)
  1. LOVENOX [Suspect]
     Indication: THROMBOSIS
     Route: 065
     Dates: start: 20140318
  2. LOVENOX [Suspect]
     Indication: THROMBOSIS
     Route: 065
     Dates: start: 20140324

REACTIONS (1)
  - Injection site haemorrhage [Unknown]
